FAERS Safety Report 7287777-5 (Version None)
Quarter: 2011Q1

REPORT INFORMATION
  Report Type: 
  Country: None (occurrence: None)
  Receive Date: 20110211
  Receipt Date: 20110131
  Transmission Date: 20110831
  Serious: No
  Sender: FDA-Public Use
  Company Number: GB-PFIZER INC-2010120649

PATIENT
  Age: 22 Year
  Sex: Female

DRUGS (2)
  1. NITROFURANTOIN [Concomitant]
     Dosage: UNK
  2. DETRUSITOL [Suspect]
     Dosage: 1 MG, 1X/DAY
     Route: 048

REACTIONS (2)
  - DRUG EXPOSURE DURING PREGNANCY [None]
  - NO ADVERSE EVENT [None]
